FAERS Safety Report 9065953 (Version 1)
Quarter: 2013Q1

REPORT INFORMATION
  Report Type: Report from Study
  Country: US (occurrence: US)
  Receive Date: 20130130
  Receipt Date: 20130130
  Transmission Date: 20140127
  Serious: No
  Sender: FDA-Public Use
  Company Number: US-ABBOTT-12P-163-0976180-00

PATIENT
  Age: 73 Year
  Sex: Female

DRUGS (10)
  1. HUMIRA [Suspect]
     Indication: PSORIATIC ARTHROPATHY
     Dates: start: 200611
  2. LEVOTHYROXINE [Concomitant]
     Indication: THYROID DISORDER
     Dosage: DAILY
  3. CELEBREX [Concomitant]
     Indication: ARTHRITIS
     Dosage: DAILY
  4. IC BENAZEPRIL HCL [Concomitant]
     Indication: HYPERTENSION
     Dosage: DAILY
  5. AMLOPIDINE BESYLATE [Concomitant]
     Indication: HYPERTENSION
     Dosage: DAILY
  6. CALCIUM [Concomitant]
     Indication: PRODUCT USED FOR UNKNOWN INDICATION
     Dosage: DAILY
  7. BABY ASPIRIN [Concomitant]
     Indication: PRODUCT USED FOR UNKNOWN INDICATION
     Dosage: DAILY
  8. IMITREX [Concomitant]
     Indication: MIGRAINE
  9. XANAX [Concomitant]
     Indication: INSOMNIA
  10. NEXIUM [Concomitant]
     Indication: ULCER HAEMORRHAGE
     Dates: start: 2009

REACTIONS (2)
  - Vitamin D abnormal [Unknown]
  - Infection [Unknown]
